FAERS Safety Report 23576689 (Version 1)
Quarter: 2024Q1

REPORT INFORMATION
  Report Type: Spontaneous
  Country: FR (occurrence: FR)
  Receive Date: 20240228
  Receipt Date: 20240228
  Transmission Date: 20240410
  Serious: Yes (Disabling)
  Sender: FDA-Public Use
  Company Number: None

PATIENT
  Age: 59 Year
  Sex: Male
  Weight: 83 kg

DRUGS (5)
  1. LORAZEPAM [Suspect]
     Active Substance: LORAZEPAM
     Indication: Parkinsonism
     Dosage: 1 DF, 1X/DAY
     Route: 048
     Dates: start: 2016
  2. ZYPREXA [Suspect]
     Active Substance: OLANZAPINE
     Indication: Personality disorder
     Dosage: 1 CAPSULE 2X/DAY
     Route: 048
     Dates: start: 2016
  3. HALDOL [Suspect]
     Active Substance: HALOPERIDOL
     Indication: Personality disorder
     Dosage: 30 DROPS 2X/DAY
     Route: 048
     Dates: start: 2016, end: 2024
  4. TRIHEXYPHENIDYL HYDROCHLORIDE [Suspect]
     Active Substance: TRIHEXYPHENIDYL HYDROCHLORIDE
     Indication: Parkinsonism
     Dosage: 1 DF, 1X/DAY
     Route: 048
     Dates: start: 2016
  5. ABILIFY [Suspect]
     Active Substance: ARIPIPRAZOLE
     Indication: Personality disorder
     Dosage: 1 DF, 1X/DAY
     Route: 048
     Dates: start: 2016

REACTIONS (2)
  - Dilated cardiomyopathy [Recovered/Resolved with Sequelae]
  - Off label use [Unknown]

NARRATIVE: CASE EVENT DATE: 20160101
